FAERS Safety Report 20539237 (Version 1)
Quarter: 2022Q1

REPORT INFORMATION
  Report Type: Spontaneous
  Country: CN (occurrence: CN)
  Receive Date: 20220302
  Receipt Date: 20220302
  Transmission Date: 20220423
  Serious: Yes (Other)
  Sender: FDA-Public Use
  Company Number: CN-BAYER-2022A031140

PATIENT
  Age: 63 Year
  Sex: Male
  Weight: 75 kg

DRUGS (2)
  1. IOPROMIDE [Suspect]
     Active Substance: IOPROMIDE
     Indication: Angiocardiogram
     Dosage: 96 ML, ONCE(PRESSURE)
     Route: 042
     Dates: start: 20220111, end: 20220111
  2. IOPROMIDE [Suspect]
     Active Substance: IOPROMIDE
     Indication: Coronary artery disease

REACTIONS (4)
  - Blood pressure abnormal [Recovering/Resolving]
  - Chills [Recovering/Resolving]
  - Injection site erythema [Recovering/Resolving]
  - Injection site swelling [Recovering/Resolving]

NARRATIVE: CASE EVENT DATE: 20220111
